FAERS Safety Report 14826445 (Version 1)
Quarter: 2018Q2

REPORT INFORMATION
  Report Type: Spontaneous
  Country: US (occurrence: US)
  Receive Date: 20180404
  Receipt Date: 20180404
  Transmission Date: 20180711
  Serious: Yes (Hospitalization)
  Sender: FDA-Public Use
  Company Number: None

PATIENT
  Age: 52 Year
  Sex: Female

DRUGS (1)
  1. PHENTERMINE. [Suspect]
     Active Substance: PHENTERMINE
     Route: 048
     Dates: start: 20180331, end: 20180403

REACTIONS (5)
  - Musculoskeletal chest pain [None]
  - Myalgia [None]
  - Dyspnoea [None]
  - Dehydration [None]
  - Vertigo [None]

NARRATIVE: CASE EVENT DATE: 20180403
